FAERS Safety Report 5636042-8 (Version None)
Quarter: 2008Q1

REPORT INFORMATION
  Report Type: 
  Country: None (occurrence: None)
  Receive Date: 20080220
  Receipt Date: 20080220
  Transmission Date: 20080703
  Serious: Yes (Other)
  Sender: FDA-Public Use
  Company Number: None

PATIENT
  Sex: Male
  Weight: 95.2554 kg

DRUGS (5)
  1. VIVITROL [Suspect]
     Indication: ALCOHOLISM
     Dosage: UNKNOWN UNKNOWN IM
     Route: 030
     Dates: start: 20070601
  2. ADVIL OTC [Concomitant]
  3. ZOLOFT [Concomitant]
  4. VISTARIL [Concomitant]
  5. LAMICTAL [Concomitant]

REACTIONS (8)
  - HAEMATOMA [None]
  - IMPAIRED HEALING [None]
  - INDURATION [None]
  - INFECTION [None]
  - MASS [None]
  - NECROSIS [None]
  - OPEN WOUND [None]
  - SCAB [None]
